FAERS Safety Report 7395767-7 (Version None)
Quarter: 2011Q2

REPORT INFORMATION
  Report Type: 
  Country: None (occurrence: None)
  Receive Date: 20110405
  Receipt Date: 20110329
  Transmission Date: 20111010
  Serious: Yes (Life-Threatening, Hospitalization)
  Sender: FDA-Public Use
  Company Number: FR-B.I. PHARMACEUTICALS,INC./RIDGEFIELD-2011-FF-00320FF

PATIENT
  Sex: Female

DRUGS (14)
  1. PHYSIOTENS [Concomitant]
     Dosage: 0.4 MG
     Route: 048
  2. TEMERIT [Concomitant]
     Dosage: 5 MG
     Route: 048
  3. INIPOMP [Suspect]
     Dosage: 40 MG
     Route: 048
  4. TRIMEBUTINE [Concomitant]
     Dosage: 300 MG
     Route: 048
     Dates: end: 20101213
  5. ALLOPURINOL [Concomitant]
     Dosage: 100 MG
     Route: 048
  6. COVERSYL [Concomitant]
     Dosage: 2.5 MG
     Route: 048
  7. MYOLASTAN [Concomitant]
     Route: 048
     Dates: start: 20101125, end: 20101213
  8. LOGIRENE [Concomitant]
     Route: 048
  9. TOPALGIC [Concomitant]
     Dosage: 200 MG
     Route: 048
     Dates: start: 20101123, end: 20101126
  10. ACETAMINOPHEN [Concomitant]
     Dosage: 4 G
     Route: 048
     Dates: end: 20101213
  11. FUMAFER [Concomitant]
     Route: 048
     Dates: end: 20101213
  12. URBANYL [Concomitant]
     Dosage: 20 MG
     Route: 048
     Dates: end: 20101126
  13. PRADAXA [Suspect]
     Indication: THROMBOSIS PROPHYLAXIS
     Dosage: 150 MG
     Route: 048
     Dates: start: 20101115, end: 20101126
  14. SPECIAFOLDINE [Concomitant]
     Dosage: 10 MG
     Route: 048
     Dates: start: 20101123, end: 20101213

REACTIONS (2)
  - DRUG INEFFECTIVE [None]
  - DEEP VEIN THROMBOSIS [None]
